FAERS Safety Report 13243106 (Version 2)
Quarter: 2017Q1

REPORT INFORMATION
  Report Type: Spontaneous
  Country: AU (occurrence: AU)
  Receive Date: 20170216
  Receipt Date: 20170222
  Transmission Date: 20170428
  Serious: Yes (Hospitalization, Disabling)
  Sender: FDA-Public Use
  Company Number: AU-B.I. PHARMACEUTICALS,INC./RIDGEFIELD-2017-BI-006451

PATIENT
  Age: 46 Year
  Sex: Male

DRUGS (2)
  1. ACTILYSE [Suspect]
     Active Substance: ALTEPLASE
     Indication: CEREBRAL ISCHAEMIA
     Route: 065
  2. PRAXBIND [Suspect]
     Active Substance: IDARUCIZUMAB
     Indication: CEREBRAL ISCHAEMIA
     Route: 065

REACTIONS (8)
  - Cerebrovascular accident [Unknown]
  - Aphasia [Unknown]
  - Ischaemic stroke [Not Recovered/Not Resolved]
  - Cerebral infarction [Unknown]
  - Treatment failure [Unknown]
  - Cerebral artery thrombosis [Unknown]
  - Malaise [Unknown]
  - Bedridden [Unknown]
